FAERS Safety Report 14843097 (Version 1)
Quarter: 2018Q2

REPORT INFORMATION
  Report Type: Spontaneous
  Country: US (occurrence: US)
  Receive Date: 20180503
  Receipt Date: 20180503
  Transmission Date: 20180711
  Serious: No
  Sender: FDA-Public Use
  Company Number: US-TEVA-2018-US-886986

PATIENT
  Sex: Male

DRUGS (2)
  1. SILDENAFIL. [Suspect]
     Active Substance: SILDENAFIL
     Route: 048
     Dates: start: 2016, end: 20180330
  2. LOSARTAN. [Concomitant]
     Active Substance: LOSARTAN
     Indication: ERECTILE DYSFUNCTION

REACTIONS (2)
  - Drug ineffective [Unknown]
  - Off label use [Unknown]
